FAERS Safety Report 15053991 (Version 2)
Quarter: 2018Q4

REPORT INFORMATION
  Report Type: Spontaneous
  Country: US (occurrence: US)
  Receive Date: 20180622
  Receipt Date: 20181218
  Transmission Date: 20190204
  Serious: Yes (Disabling)
  Sender: FDA-Public Use
  Company Number: US-OTSUKA-2018_015394

PATIENT
  Sex: Female

DRUGS (7)
  1. NAPROXEN. [Concomitant]
     Active Substance: NAPROXEN
     Indication: INFLAMMATION
  2. ABILIFY [Suspect]
     Active Substance: ARIPIPRAZOLE
     Indication: OBSESSIVE-COMPULSIVE DISORDER
  3. CAPSAICIN. [Concomitant]
     Active Substance: CAPSAICIN
     Indication: ANALGESIC THERAPY
     Dosage: UNK, BID
     Route: 061
  4. SIMVASTATIN. [Concomitant]
     Active Substance: SIMVASTATIN
     Indication: BLOOD CHOLESTEROL
     Dosage: 0.5 DF, QD
     Route: 048
  5. ABILIFY [Suspect]
     Active Substance: ARIPIPRAZOLE
     Indication: POST-TRAUMATIC STRESS DISORDER
  6. ABILIFY [Suspect]
     Active Substance: ARIPIPRAZOLE
     Indication: ANXIETY
     Dosage: 30 MG, QD
     Route: 065
     Dates: start: 20060213, end: 201208
  7. NAPROXEN. [Concomitant]
     Active Substance: NAPROXEN
     Indication: PAIN
     Dosage: UNK
     Route: 065

REACTIONS (23)
  - Irritability [Unknown]
  - Injury [Unknown]
  - Mental impairment [Unknown]
  - Mean cell haemoglobin decreased [Unknown]
  - Economic problem [Unknown]
  - Bankruptcy [Unknown]
  - Anhedonia [Unknown]
  - Social problem [Unknown]
  - Disability [Unknown]
  - Mean cell haemoglobin concentration decreased [Unknown]
  - Blood cholesterol increased [Unknown]
  - Loss of employment [Unknown]
  - Red cell distribution width increased [Unknown]
  - Low density lipoprotein increased [Unknown]
  - Haematocrit decreased [Unknown]
  - Emotional distress [Unknown]
  - Obsessive-compulsive disorder [Recovered/Resolved]
  - Compulsive shopping [Recovered/Resolved]
  - Condition aggravated [Unknown]
  - Aspartate aminotransferase decreased [Unknown]
  - Haemoglobin decreased [Unknown]
  - Gambling disorder [Not Recovered/Not Resolved]
  - Product use in unapproved indication [Unknown]

NARRATIVE: CASE EVENT DATE: 200602
